FAERS Safety Report 24168441 (Version 1)
Quarter: 2024Q3

REPORT INFORMATION
  Report Type: Spontaneous
  Country: CZ (occurrence: CZ)
  Receive Date: 20240802
  Receipt Date: 20240802
  Transmission Date: 20241017
  Serious: Yes (Hospitalization)
  Sender: TEVA
  Company Number: CZ-TEVA-VS-3227235

PATIENT
  Age: 26 Year
  Sex: Female

DRUGS (1)
  1. CYCLOSPORINE [Suspect]
     Active Substance: CYCLOSPORINE
     Indication: Dermatitis atopic
     Route: 065

REACTIONS (4)
  - Pyelonephritis [Unknown]
  - Nausea [Recovered/Resolved]
  - Urinary tract infection [Unknown]
  - Headache [Recovered/Resolved]
